APPROVED DRUG PRODUCT: BREVIBLOC
Active Ingredient: ESMOLOL HYDROCHLORIDE
Strength: 20MG/ML
Dosage Form/Route: INJECTABLE;INJECTION
Application: N019386 | Product #007
Applicant: BAXTER HEALTHCARE CORP
Approved: May 28, 2003 | RLD: No | RS: No | Type: DISCN